FAERS Safety Report 14543261 (Version 2)
Quarter: 2022Q1

REPORT INFORMATION
  Report Type: Spontaneous
  Country: US (occurrence: US)
  Receive Date: 20180216
  Receipt Date: 20220224
  Transmission Date: 20220423
  Serious: Yes (Other)
  Sender: FDA-Public Use
  Company Number: US-LANTHEUS-LMI-2017-00364

PATIENT
  Sex: Female

DRUGS (10)
  1. DEFINITY [Suspect]
     Active Substance: PERFLUTREN
     Indication: Echocardiogram
     Dosage: UNK
     Route: 042
     Dates: start: 20170721
  2. HYDROCHLOROTHIAZIDE [Concomitant]
     Active Substance: HYDROCHLOROTHIAZIDE
     Indication: Product used for unknown indication
  3. VERAPAMIL [Concomitant]
     Active Substance: VERAPAMIL HYDROCHLORIDE
     Indication: Product used for unknown indication
  4. KLOR-CON [Concomitant]
     Active Substance: POTASSIUM CHLORIDE
     Indication: Product used for unknown indication
  5. METFORMIN [Concomitant]
     Active Substance: METFORMIN HYDROCHLORIDE
     Indication: Product used for unknown indication
  6. NOVOLIN N [Concomitant]
     Active Substance: INSULIN HUMAN
     Indication: Product used for unknown indication
  7. PRILOSEC                           /00661201/ [Concomitant]
     Indication: Product used for unknown indication
  8. ZANTAC [Concomitant]
     Active Substance: RANITIDINE HYDROCHLORIDE
     Indication: Product used for unknown indication
  9. IBUPROFEN [Concomitant]
     Active Substance: IBUPROFEN
     Indication: Product used for unknown indication
  10. BENADRYL                           /00000402/ [Concomitant]
     Indication: Product used for unknown indication
     Dosage: UNK, EVENING

REACTIONS (11)
  - Heart rate increased [Recovered/Resolved]
  - Myalgia [Recovered/Resolved]
  - Coccydynia [Recovered/Resolved]
  - Muscular weakness [Recovered/Resolved]
  - Anxiety [Recovered/Resolved]
  - Renal pain [Recovered/Resolved]
  - Flushing [Recovered/Resolved]
  - Blood pressure increased [Recovered/Resolved]
  - Arthralgia [Recovered/Resolved]
  - Back pain [Recovered/Resolved]
  - Dyspnoea [Recovered/Resolved]

NARRATIVE: CASE EVENT DATE: 20170721
